FAERS Safety Report 10654346 (Version 3)
Quarter: 2015Q4

REPORT INFORMATION
  Report Type: Report from Study
  Country: BR (occurrence: BR)
  Receive Date: 20141216
  Receipt Date: 20151221
  Transmission Date: 20160304
  Serious: Yes (Life-Threatening, Hospitalization, Other)
  Sender: FDA-Public Use
  Company Number: BR-ROCHE-1507350

PATIENT
  Age: 71 Year
  Sex: Female
  Weight: 53 kg

DRUGS (10)
  1. XOLAIR [Suspect]
     Active Substance: OMALIZUMAB
     Indication: ASTHMA
     Route: 058
     Dates: start: 201406
  2. PURAN [Concomitant]
     Active Substance: LEVOTHYROXINE SODIUM
     Route: 065
  3. OMEPRAZOLE. [Concomitant]
     Active Substance: OMEPRAZOLE
     Route: 065
  4. XOLAIR [Suspect]
     Active Substance: OMALIZUMAB
     Route: 058
     Dates: start: 20151018
  5. SERETIDE [Concomitant]
     Active Substance: FLUTICASONE FUROATE\SALMETEROL XINAFOATE
     Dosage: 50/250 UG
     Route: 065
  6. XOLAIR [Suspect]
     Active Substance: OMALIZUMAB
     Route: 058
  7. LASIX [Concomitant]
     Active Substance: FUROSEMIDE
     Route: 065
     Dates: start: 20141013
  8. MAREVAN [Concomitant]
     Active Substance: WARFARIN SODIUM
     Route: 065
     Dates: start: 20141013
  9. MAREVAN [Concomitant]
     Active Substance: WARFARIN SODIUM
     Route: 065
     Dates: start: 201510
  10. SPIRIVA [Concomitant]
     Active Substance: TIOTROPIUM BROMIDE MONOHYDRATE
     Route: 065
     Dates: start: 2013

REACTIONS (6)
  - Pulmonary embolism [Recovered/Resolved]
  - Coagulation time shortened [Recovered/Resolved]
  - Thrombosis [Recovered/Resolved]
  - Apparent death [Recovering/Resolving]
  - Weight decreased [Recovering/Resolving]
  - Immune system disorder [Recovering/Resolving]

NARRATIVE: CASE EVENT DATE: 20141012
